FAERS Safety Report 4279018-8 (Version None)
Quarter: 2004Q1

REPORT INFORMATION
  Report Type: 
  Country: None (occurrence: None)
  Receive Date: 20040122
  Receipt Date: 20040116
  Transmission Date: 20041129
  Serious: Yes (Hospitalization, Disabling)
  Sender: FDA-Public Use
  Company Number: TPA2004A00057

PATIENT
  Age: 31 Year
  Sex: Female
  Weight: 225 kg

DRUGS (4)
  1. ACTOS [Suspect]
     Indication: DIABETES MELLITUS
     Dosage: 30 MG, 1 IN 1 D, PER ORAL
     Route: 048
     Dates: start: 20010501
  2. GLUCOPHAGE XR (METFORMIN HYDROCHLORIDE) [Concomitant]
  3. ALTACE (RAMIPRIL) (-2.5 MILLIGRAM) [Concomitant]
  4. PROZAC [Concomitant]

REACTIONS (3)
  - DISEASE RECURRENCE [None]
  - MAJOR DEPRESSION [None]
  - VAGINAL HAEMORRHAGE [None]
